FAERS Safety Report 13847547 (Version 7)
Quarter: 2018Q3

REPORT INFORMATION
  Report Type: Report from Study
  Country: None (occurrence: US)
  Receive Date: 20170809
  Receipt Date: 20180705
  Transmission Date: 20181010
  Serious: Yes (Other)
  Sender: FDA-Public Use
  Company Number: US-ABBVIE-17K-163-1961470-00

PATIENT
  Age: 73 Year
  Sex: Female

DRUGS (8)
  1. HUMIRA [Suspect]
     Active Substance: ADALIMUMAB
     Indication: PSORIASIS
     Route: 058
     Dates: start: 20160815, end: 20161213
  2. HUMIRA [Suspect]
     Active Substance: ADALIMUMAB
     Route: 058
     Dates: start: 2017, end: 201712
  3. SYNTHROID [Concomitant]
     Active Substance: LEVOTHYROXINE SODIUM
     Indication: THYROID DISORDER
     Dosage: FOR 25 YEARS
  4. HUMIRA [Suspect]
     Active Substance: ADALIMUMAB
     Indication: RHEUMATOID ARTHRITIS
     Route: 058
     Dates: start: 20170103, end: 201701
  5. HUMIRA [Suspect]
     Active Substance: ADALIMUMAB
     Route: 058
     Dates: start: 2017, end: 20170614
  6. ZINC. [Concomitant]
     Active Substance: ZINC
     Indication: BLOOD PRESSURE MEASUREMENT
  7. BABY ASPIRIN [Concomitant]
     Active Substance: ASPIRIN
     Indication: PRODUCT USED FOR UNKNOWN INDICATION
  8. HUMIRA [Suspect]
     Active Substance: ADALIMUMAB
     Indication: PSORIATIC ARTHROPATHY
     Dosage: DAY ONE
     Route: 058
     Dates: start: 20160808, end: 20160808

REACTIONS (31)
  - Bone cancer [Recovering/Resolving]
  - Osteoarthritis [Recovering/Resolving]
  - Mobility decreased [Unknown]
  - Helplessness [Unknown]
  - Psoriasis [Not Recovered/Not Resolved]
  - Hypertension [Not Recovered/Not Resolved]
  - Psoriasis [Recovered/Resolved]
  - Pain of skin [Recovered/Resolved]
  - Bone cancer [Recovered/Resolved]
  - Joint stiffness [Not Recovered/Not Resolved]
  - Bronchitis [Unknown]
  - Peripheral swelling [Not Recovered/Not Resolved]
  - Exostosis [Not Recovered/Not Resolved]
  - Hyperhidrosis [Recovering/Resolving]
  - Drug effect incomplete [Not Recovered/Not Resolved]
  - Depression [Not Recovered/Not Resolved]
  - Injection site erythema [Recovered/Resolved]
  - Arthralgia [Not Recovered/Not Resolved]
  - Skin haemorrhage [Recovered/Resolved]
  - Nasopharyngitis [Unknown]
  - Diarrhoea [Unknown]
  - Vertigo [Not Recovered/Not Resolved]
  - Cardiac disorder [Not Recovered/Not Resolved]
  - Skin fissures [Recovered/Resolved]
  - General physical condition abnormal [Unknown]
  - Hot flush [Unknown]
  - Pruritus [Recovering/Resolving]
  - Anxiety [Not Recovered/Not Resolved]
  - Influenza like illness [Unknown]
  - Emotional distress [Unknown]
  - Psoriasis [Not Recovered/Not Resolved]

NARRATIVE: CASE EVENT DATE: 2016
